FAERS Safety Report 21787579 (Version 2)
Quarter: 2023Q1

REPORT INFORMATION
  Report Type: Spontaneous
  Country: CA (occurrence: CA)
  Receive Date: 20221228
  Receipt Date: 20230104
  Transmission Date: 20230417
  Serious: No
  Sender: FDA-Public Use
  Company Number: CA-CELLTRION INC.-2022CA021724

PATIENT

DRUGS (2)
  1. INFLECTRA [Suspect]
     Active Substance: INFLIXIMAB-DYYB
     Indication: Crohn^s disease
     Dosage: 700 MG Q 0, 2, 6, THEN EVERY 8 WEEKSWEEK 0 DOSE AT HOSPITAL
     Route: 042
     Dates: start: 20221212
  2. PREDNISONE [Concomitant]
     Active Substance: PREDNISONE
     Dosage: TAPERING

REACTIONS (1)
  - Off label use [Unknown]

NARRATIVE: CASE EVENT DATE: 20221212
